FAERS Safety Report 6062809-0 (Version None)
Quarter: 2009Q1

REPORT INFORMATION
  Report Type: 
  Country: None (occurrence: None)
  Receive Date: 20090203
  Receipt Date: 20090119
  Transmission Date: 20090719
  Serious: Yes (Other)
  Sender: FDA-Public Use
  Company Number: PHHO2007MX03552

PATIENT
  Sex: Female

DRUGS (4)
  1. DIOVAN HCT [Suspect]
     Indication: HYPERTENSION
     Dosage: 160MG/12.5MG DAILY
     Route: 048
     Dates: end: 20080801
  2. DIOVAN HCT [Suspect]
     Dosage: HALF 160MG/12.5MG DAILY
     Route: 048
     Dates: end: 20080801
  3. HYDROCHLOROTHIAZIDE [Concomitant]
  4. METOPROLOL TARTRATE [Concomitant]

REACTIONS (4)
  - AMNESIA [None]
  - ANOREXIA [None]
  - CEREBRAL ISCHAEMIA [None]
  - FEAR [None]
